FAERS Safety Report 8857401 (Version 1)
Quarter: 2012Q4

REPORT INFORMATION
  Report Type: 
  Country: US (occurrence: US)
  Receive Date: 20121024
  Receipt Date: 20121024
  Transmission Date: 20130627
  Serious: No
  Sender: FDA-Public Use
  Company Number: US-009507513-1210USA007523

PATIENT
  Sex: Female
  Weight: 62.59 kg

DRUGS (1)
  1. IMPLANON [Suspect]
     Indication: CONTRACEPTION
     Dosage: UNK
     Dates: start: 20110117

REACTIONS (2)
  - Implant site pain [Not Recovered/Not Resolved]
  - Medical device complication [Unknown]
